FAERS Safety Report 7769029-X (Version None)
Quarter: 2011Q3

REPORT INFORMATION
  Report Type: 
  Country: None (occurrence: None)
  Receive Date: 20110922
  Receipt Date: 20101206
  Transmission Date: 20111222
  Serious: No
  Sender: FDA-Public Use
  Company Number: US-ASTRAZENECA-2009UW11228

PATIENT
  Age: 43 Year
  Sex: Female
  Weight: 93.9 kg

DRUGS (9)
  1. ZOLOFT [Concomitant]
  2. REQUIP [Concomitant]
  3. SEROQUEL [Suspect]
     Indication: INSOMNIA
     Route: 048
  4. SEROQUEL [Suspect]
     Route: 048
     Dates: start: 20101101
  5. CLONAZEPAM [Concomitant]
  6. SEROQUEL [Suspect]
     Route: 048
     Dates: start: 20101101
  7. SEROQUEL [Suspect]
     Route: 048
     Dates: start: 19960101, end: 20101101
  8. SEROQUEL [Suspect]
     Indication: BIPOLAR DISORDER
     Route: 048
  9. SEROQUEL [Suspect]
     Route: 048
     Dates: start: 19960101, end: 20101101

REACTIONS (5)
  - DYSPNOEA [None]
  - PARALYSIS [None]
  - INSOMNIA [None]
  - DRUG INEFFECTIVE [None]
  - PALPITATIONS [None]
